FAERS Safety Report 5606029-X (Version None)
Quarter: 2008Q1

REPORT INFORMATION
  Report Type: 
  Country: None (occurrence: None)
  Receive Date: 20080129
  Receipt Date: 20071226
  Transmission Date: 20080703
  Serious: Yes (Hospitalization)
  Sender: FDA-Public Use
  Company Number: FR-JNJFOC-20080106568

PATIENT
  Sex: Female

DRUGS (10)
  1. ULTRACET [Suspect]
     Indication: PROCEDURAL PAIN
     Route: 048
  2. PROFENID [Suspect]
     Indication: PROCEDURAL PAIN
     Route: 042
  3. CLAMOXYL [Suspect]
     Indication: INFECTION PROPHYLAXIS
     Route: 042
  4. GENTAMICIN [Suspect]
     Indication: INFECTION PROPHYLAXIS
     Route: 042
  5. PERFALGAN [Suspect]
     Indication: PROCEDURAL PAIN
     Route: 042
  6. LOVENOX [Suspect]
     Indication: PROPHYLAXIS
     Route: 058
  7. CEFACIDAL [Suspect]
     Indication: PROPHYLAXIS
     Route: 042
  8. DAFALGAN [Suspect]
     Indication: PROCEDURAL PAIN
     Route: 048
  9. NEXIUM [Suspect]
     Indication: PANCREATITIS
     Route: 048
  10. LAROXYL [Suspect]
     Indication: DRUG USE FOR UNKNOWN INDICATION
     Route: 048

REACTIONS (2)
  - LEUKOPENIA [None]
  - NEUTROPENIA [None]
